FAERS Safety Report 8078157-3 (Version None)
Quarter: 2012Q1

REPORT INFORMATION
  Report Type: 
  Country: None (occurrence: None)
  Receive Date: 20120127
  Receipt Date: 20110117
  Transmission Date: 20120608
  Serious: No
  Sender: FDA-Public Use
  Company Number: US-ABBOTT-10P-163-0690817-00

PATIENT
  Sex: Female

DRUGS (8)
  1. MANY UNKNOWN MEDICATIONS [Concomitant]
     Indication: PRODUCT USED FOR UNKNOWN INDICATION
     Dates: end: 20110101
  2. UNKNOWN PAIN MEDICATION [Concomitant]
     Indication: PAIN MANAGEMENT
     Dates: end: 20110101
  3. ISONIAZID [Concomitant]
     Indication: ANTIBIOTIC PROPHYLAXIS
     Dates: start: 20100101, end: 20110101
  4. HUMIRA [Suspect]
     Indication: PSORIATIC ARTHROPATHY
  5. RIFAMPIN [Concomitant]
     Indication: ANTIBIOTIC PROPHYLAXIS
     Dates: end: 20110101
  6. METHOTREXATE [Concomitant]
     Indication: PRODUCT USED FOR UNKNOWN INDICATION
     Dates: start: 20110111
  7. METHOTREXATE [Concomitant]
     Dates: start: 20110101
  8. HUMIRA [Suspect]
     Indication: RHEUMATOID ARTHRITIS
     Route: 058
     Dates: start: 20101202, end: 20110101

REACTIONS (4)
  - RASH ERYTHEMATOUS [None]
  - INFECTION [None]
  - RASH PRURITIC [None]
  - HEADACHE [None]
